FAERS Safety Report 18467963 (Version 1)
Quarter: 2020Q4

REPORT INFORMATION
  Report Type: Spontaneous
  Country: US (occurrence: US)
  Receive Date: 20201105
  Receipt Date: 20201105
  Transmission Date: 20210114
  Serious: Yes (Death, Life-Threatening)
  Sender: FDA-Public Use
  Company Number: US-PFIZER INC-2020425629

PATIENT
  Age: 81 Year
  Sex: Male

DRUGS (8)
  1. NAPROXEN. [Concomitant]
     Active Substance: NAPROXEN
     Dosage: UNK
  2. METRONIDAZOLE. [Suspect]
     Active Substance: METRONIDAZOLE
     Dosage: UNK
  3. LEVOFLOXACIN. [Suspect]
     Active Substance: LEVOFLOXACIN
     Dosage: 500 MG, 1X/DAY
     Route: 042
     Dates: start: 20010727, end: 20010809
  4. CYCLOPHOSPHAMIDE. [Suspect]
     Active Substance: CYCLOPHOSPHAMIDE
     Dosage: UNK UNK, DAILY
     Route: 048
     Dates: start: 20010401, end: 20010808
  5. HARZOL [Concomitant]
     Active Substance: .BETA.-SITOSTEROL
     Dosage: UNK
  6. ACETYLCYSTEINE. [Concomitant]
     Active Substance: ACETYLCYSTEINE
     Dosage: UNK
  7. CAPTOHEXAL [Concomitant]
     Active Substance: CAPTOPRIL
     Dosage: UNK
  8. DECORTIN [Concomitant]
     Active Substance: PREDNISONE
     Dosage: UNK

REACTIONS (13)
  - Respiratory failure [Fatal]
  - Arrhythmia [Fatal]
  - Pneumonia [Fatal]
  - White blood cell count decreased [Fatal]
  - Torsade de pointes [Fatal]
  - Dyspepsia [Fatal]
  - Thrombocytopenia [Fatal]
  - Ventricular flutter [Fatal]
  - Leukopenia [Fatal]
  - Bone marrow failure [Fatal]
  - Fungal sepsis [Fatal]
  - Multiple organ dysfunction syndrome [Fatal]
  - Ventricular fibrillation [Fatal]

NARRATIVE: CASE EVENT DATE: 20010801
